FAERS Safety Report 11796357 (Version 2)
Quarter: 2015Q4

REPORT INFORMATION
  Report Type: Spontaneous
  Country: US (occurrence: US)
  Receive Date: 20151203
  Receipt Date: 20151204
  Transmission Date: 20160305
  Serious: Yes (Other)
  Sender: FDA-Public Use
  Company Number: US-PFIZER INC-2015410484

PATIENT
  Sex: Female

DRUGS (1)
  1. LYRICA [Suspect]
     Active Substance: PREGABALIN
     Dosage: 50 MG, UNK

REACTIONS (8)
  - Lyme disease [Unknown]
  - Agitation [Unknown]
  - Anger [Unknown]
  - Mood altered [Unknown]
  - Pain [Unknown]
  - Anxiety [Unknown]
  - Rheumatoid arthritis [Unknown]
  - Mobility decreased [Unknown]
